FAERS Safety Report 7375813 (Version 6)
Quarter: 2014Q1

REPORT INFORMATION
  Report Type: Spontaneous
  Country: US (occurrence: US)
  Receive Date: 20100504
  Receipt Date: 20140122
  Transmission Date: 20141002
  Serious: Yes (Hospitalization, Other)
  Sender: FDA-Public Use
  Company Number: US-BAYER-201020519NA

PATIENT
  Age: 19 Year
  Sex: Female
  Weight: 78.18 kg

DRUGS (19)
  1. YAZ [Suspect]
     Indication: CONTRACEPTION
     Dosage: UNK UNK, UNK
     Route: 048
     Dates: start: 200608, end: 20090401
  2. YAZ [Suspect]
     Indication: PREMENSTRUAL SYNDROME
  3. YAZ [Suspect]
     Indication: ACNE
  4. YAZ [Suspect]
     Indication: MENSTRUATION IRREGULAR
  5. YASMIN [Suspect]
     Indication: CONTRACEPTION
     Dosage: UNK UNK, UNK
     Route: 048
     Dates: start: 200608, end: 20090401
  6. YASMIN [Suspect]
     Indication: PREMENSTRUAL SYNDROME
  7. YASMIN [Suspect]
     Indication: ACNE
  8. YASMIN [Suspect]
     Indication: MENSTRUATION IRREGULAR
  9. SINGULAIR [Concomitant]
     Dosage: 10 MG, UNK
     Route: 048
  10. SINGULAIR [Concomitant]
     Dosage: UNK
     Dates: start: 200802
  11. LEVAQUIN [Concomitant]
     Dosage: 500 MG, UNK
     Route: 048
  12. ALBUTEROL [Concomitant]
     Dosage: UNK UNK, PRN
  13. LEXAPRO [Concomitant]
  14. ZYRTEC [Concomitant]
  15. AVELOX [Concomitant]
  16. VALTREX [Concomitant]
  17. BETAMETHACORT DIPROPIONATE [Concomitant]
  18. LORCET PLUS [Concomitant]
     Dosage: UNK
     Dates: start: 200804
  19. ASMANEX [Concomitant]
     Dosage: UNK UNK, PRN (AS NEEDED)

REACTIONS (11)
  - Cholecystitis chronic [Recovering/Resolving]
  - Cholelithiasis [Recovering/Resolving]
  - Cellulitis [Unknown]
  - Weight increased [None]
  - Abdominal pain upper [Recovering/Resolving]
  - Nausea [Recovering/Resolving]
  - Vomiting [Recovering/Resolving]
  - Dehydration [Recovering/Resolving]
  - Abdominal discomfort [Recovering/Resolving]
  - Mood swings [None]
  - Anxiety [None]
